FAERS Safety Report 4932171-2 (Version None)
Quarter: 2006Q1

REPORT INFORMATION
  Report Type: 
  Country: None (occurrence: None)
  Receive Date: 20060228
  Receipt Date: 20060206
  Transmission Date: 20060701
  Serious: Yes (Hospitalization, Other)
  Sender: FDA-Public Use
  Company Number: USA041286928

PATIENT
  Age: 90 Year
  Sex: Female
  Weight: 50 kg

DRUGS (10)
  1. FORTEO [Suspect]
     Indication: OSTEOPOROSIS
     Dosage: 20 UG, EACH EVENING
     Dates: start: 20041001
  2. FORTEO PEN (FORTEO PEN) PEN, DISPOSABLE [Concomitant]
  3. AMLODIPINE [Concomitant]
  4. TERAZOSIN (TERAZOSIN) [Concomitant]
  5. OSCAL (CALCIUM CARBONATE) [Concomitant]
  6. MONTELUKAST (MONTELUKAST) [Concomitant]
  7. NEXIUM [Concomitant]
  8. TRAMADOL HCL [Concomitant]
  9. ADVAIR DISKUS 100/50 [Concomitant]
  10. COMBIVENT [Concomitant]

REACTIONS (7)
  - COLON CANCER [None]
  - FALL [None]
  - FULL BLOOD COUNT DECREASED [None]
  - HIP FRACTURE [None]
  - PHARMACEUTICAL PRODUCT COMPLAINT [None]
  - URINARY TRACT INFECTION [None]
  - URINE ODOUR ABNORMAL [None]
